FAERS Safety Report 22823371 (Version 3)
Quarter: 2024Q1

REPORT INFORMATION
  Report Type: Report from Study
  Country: BR (occurrence: BR)
  Receive Date: 20230815
  Receipt Date: 20240131
  Transmission Date: 20240410
  Serious: Yes (Other)
  Sender: FDA-Public Use
  Company Number: BR-MYLANLABS-2023M1085448

PATIENT
  Sex: Female
  Weight: 53 kg

DRUGS (1)
  1. XALATAN [Suspect]
     Active Substance: LATANOPROST
     Indication: Eye disorder
     Dosage: 1 GTT DROPS, QD (1 DROP IN EACH EYE AT NIGHT)
     Route: 047
     Dates: end: 202307

REACTIONS (3)
  - Emphysema [Not Recovered/Not Resolved]
  - Osteoporosis [Not Recovered/Not Resolved]
  - Blood cholesterol increased [Not Recovered/Not Resolved]
